FAERS Safety Report 4634320-2 (Version None)
Quarter: 2005Q2

REPORT INFORMATION
  Report Type: 
  Country: None (occurrence: None)
  Receive Date: 20050413
  Receipt Date: 20050221
  Transmission Date: 20051028
  Serious: Yes (Hospitalization)
  Sender: FDA-Public Use
  Company Number: US-BRISTOL-MYERS SQUIBB COMPANY-12870473

PATIENT
  Age: 81 Year
  Sex: Male

DRUGS (7)
  1. CARBOPLATIN [Suspect]
     Indication: NON-SMALL CELL LUNG CANCER
     Dosage: DOSE REDUCED ON 10-FEB-2005.
     Route: 042
     Dates: start: 20050210, end: 20050210
  2. GEMZAR [Suspect]
     Indication: NON-SMALL CELL LUNG CANCER
     Dosage: DOSE REDUCED ON 17-FEB-2005.
     Route: 042
     Dates: start: 20050210
  3. DIOVAN [Concomitant]
  4. GLYBURIDE [Concomitant]
  5. KEFLEX [Concomitant]
     Dosage: Q6H.
     Dates: start: 20050218
  6. THORAZINE [Concomitant]
     Dosage: ONE Q6H PRN.
     Dates: start: 20050218
  7. XOPENEX [Concomitant]

REACTIONS (8)
  - ANAEMIA [None]
  - BLOOD GLUCOSE INCREASED [None]
  - DRUG TOXICITY [None]
  - GASTRITIS EROSIVE [None]
  - GASTROINTESTINAL HAEMORRHAGE [None]
  - PLATELET COUNT DECREASED [None]
  - SMALL INTESTINAL HAEMORRHAGE [None]
  - WHITE BLOOD CELL COUNT DECREASED [None]
